FAERS Safety Report 9939398 (Version 1)
Quarter: 2014Q1

REPORT INFORMATION
  Report Type: Report from Study
  Country: US (occurrence: US)
  Receive Date: 20140303
  Receipt Date: 20140303
  Transmission Date: 20141002
  Serious: Yes (Hospitalization)
  Sender: FDA-Public Use
  Company Number: US-ABBVIE-13P-163-1033192-00

PATIENT
  Age: 59 Year
  Sex: Female

DRUGS (8)
  1. HUMIRA [Suspect]
     Indication: RHEUMATOID ARTHRITIS
     Dates: start: 2006
  2. CELEBREX [Concomitant]
     Indication: RHEUMATOID ARTHRITIS
  3. PROZAC [Concomitant]
     Indication: DEPRESSION
  4. CYCLOBENZAPRINE (NON-ABBOTT) [Concomitant]
     Indication: PAIN
  5. OXBUTYNIN (NON-ABBOTT) [Concomitant]
     Indication: URINARY INCONTINENCE
  6. METHOTREXATE (NON-ABBOTT) [Concomitant]
     Indication: RHEUMATOID ARTHRITIS
  7. FOLIC ACID [Concomitant]
     Indication: VITAMIN SUPPLEMENTATION
  8. OMEPRAZOLE (NON-ABBOTT) [Concomitant]
     Indication: GASTROOESOPHAGEAL REFLUX DISEASE

REACTIONS (2)
  - Cellulitis [Recovered/Resolved]
  - Asthma [Recovered/Resolved]
